FAERS Safety Report 10146968 (Version 5)
Quarter: 2014Q3

REPORT INFORMATION
  Report Type: Spontaneous
  Country: US (occurrence: US)
  Receive Date: 20140501
  Receipt Date: 20140922
  Transmission Date: 20150326
  Serious: Yes (Hospitalization)
  Sender: FDA-Public Use
  Company Number: US-GLAXOSMITHKLINE-A1071433A

PATIENT
  Age: 52 Year
  Sex: Female

DRUGS (2)
  1. FLOLAN [Suspect]
     Active Substance: EPOPROSTENOL SODIUM
     Indication: PULMONARY ARTERIAL HYPERTENSION
     Dosage: 18NGKM CONTINUOUS
     Route: 042
     Dates: start: 20140407
  2. OXYGEN. [Suspect]
     Active Substance: OXYGEN
     Indication: PRODUCT USED FOR UNKNOWN INDICATION
     Route: 065

REACTIONS (12)
  - Fatigue [Unknown]
  - Chest discomfort [Not Recovered/Not Resolved]
  - Flatulence [Not Recovered/Not Resolved]
  - Fluid retention [Not Recovered/Not Resolved]
  - Liver transplant [Unknown]
  - Myalgia [Unknown]
  - Dyspnoea exertional [Recovering/Resolving]
  - Constipation [Not Recovered/Not Resolved]
  - Dyspnoea [Recovering/Resolving]
  - Ascites [Unknown]
  - Pain in extremity [Not Recovered/Not Resolved]
  - Investigation [Recovered/Resolved]

NARRATIVE: CASE EVENT DATE: 2014
